FAERS Safety Report 6516880-X (Version None)
Quarter: 2009Q4

REPORT INFORMATION
  Report Type: 
  Country: None (occurrence: None)
  Receive Date: 20091223
  Receipt Date: 20091216
  Transmission Date: 20100525
  Serious: Yes (Congenital Anomaly)
  Sender: FDA-Public Use
  Company Number: US-GILEAD-2009-0026086

PATIENT
  Sex: Male

DRUGS (2)
  1. TRUVADA [Suspect]
     Route: 064
  2. RALTEGRAVIR [Concomitant]
     Route: 064

REACTIONS (1)
  - CONGENITAL HEART VALVE DISORDER [None]
